FAERS Safety Report 7244176-X (Version None)
Quarter: 2011Q1

REPORT INFORMATION
  Report Type: 
  Country: None (occurrence: None)
  Receive Date: 20110119
  Receipt Date: 20110119
  Transmission Date: 20110831
  Serious: No
  Sender: FDA-Public Use
  Company Number: None

PATIENT
  Age: 59 Year
  Sex: Female
  Weight: 72.5755 kg

DRUGS (2)
  1. TRIAD ALCOHOL PREP PADS [Suspect]
     Dates: start: 20100801, end: 20110116
  2. COPAXON [Concomitant]

REACTIONS (2)
  - FATIGUE [None]
  - DIARRHOEA [None]
